FAERS Safety Report 5977002-7 (Version None)
Quarter: 2008Q4

REPORT INFORMATION
  Report Type: 
  Country: None (occurrence: None)
  Receive Date: 20081202
  Receipt Date: 20081202
  Transmission Date: 20090506
  Serious: Yes (Other)
  Sender: FDA-Public Use
  Company Number: None

PATIENT
  Sex: Female

DRUGS (2)
  1. FLUOXETINE [Suspect]
     Indication: BIPOLAR II DISORDER
     Dosage: 20 MG TWICE PO QAM
     Route: 048
  2. FLUOXETINE [Suspect]
     Indication: MAJOR DEPRESSION
     Dosage: 20 MG TWICE PO QAM
     Route: 048

REACTIONS (6)
  - DEPENDENT PERSONALITY DISORDER [None]
  - DEPRESSION [None]
  - DISEASE RECURRENCE [None]
  - ILL-DEFINED DISORDER [None]
  - SUICIDAL IDEATION [None]
  - THERAPEUTIC RESPONSE UNEXPECTED WITH DRUG SUBSTITUTION [None]
